FAERS Safety Report 8395964-8 (Version None)
Quarter: 2012Q2

REPORT INFORMATION
  Report Type: 
  Country: None (occurrence: None)
  Receive Date: 20120530
  Receipt Date: 20120522
  Transmission Date: 20120825
  Serious: Yes (Death, Life-Threatening, Hospitalization, Other)
  Sender: FDA-Public Use
  Company Number: FR-PFIZER INC-2012086420

PATIENT
  Age: 96 Year
  Sex: Male

DRUGS (11)
  1. AVODART [Concomitant]
     Dosage: UNK
     Dates: end: 20120213
  2. LASIX [Interacting]
     Dosage: 20 MG, UNK
     Route: 048
     Dates: end: 20120213
  3. GENTAMICIN [Concomitant]
     Dosage: UNK
     Dates: end: 20120207
  4. ALFUZOSIN HCL [Concomitant]
     Dosage: UNK
     Dates: end: 20120213
  5. RAMIPRIL [Suspect]
     Dosage: 2.5 MG, UNK
     Route: 048
     Dates: start: 20120210, end: 20120213
  6. BISOPROLOL FUMARATE [Interacting]
     Dosage: 1.25 MG, UNK
     Route: 048
     Dates: start: 20120209, end: 20120213
  7. OXACILLIN [Concomitant]
     Dosage: UNK
     Dates: end: 20120207
  8. TRAMADOL HCL [Concomitant]
     Dosage: UNK
     Dates: end: 20120213
  9. COLCHICINE [Concomitant]
     Dosage: UNK
     Dates: start: 20120207, end: 20120213
  10. OLMESARTAN MEDOXOMIL [Interacting]
     Dosage: 10 MG, DAILY
     Route: 048
     Dates: end: 20120213
  11. LOVENOX [Concomitant]
     Dosage: UNK
     Dates: end: 20120213

REACTIONS (7)
  - RENAL FAILURE ACUTE [None]
  - HYPOTENSION [None]
  - DIARRHOEA [None]
  - SHOCK [None]
  - ARTHRITIS BACTERIAL [None]
  - HAEMODYNAMIC INSTABILITY [None]
  - DRUG INTERACTION [None]
